FAERS Safety Report 16476457 (Version 1)
Quarter: 2019Q2

REPORT INFORMATION
  Report Type: Spontaneous
  Country: TR (occurrence: TR)
  Receive Date: 20190626
  Receipt Date: 20190626
  Transmission Date: 20190711
  Serious: Yes (Hospitalization)
  Sender: FDA-Public Use
  Company Number: PHHY2019TR136239

PATIENT
  Age: 68 Year
  Sex: Female

DRUGS (4)
  1. DIGOXIN. [Suspect]
     Active Substance: DIGOXIN
     Indication: CARDIAC FAILURE CONGESTIVE
     Dosage: UNK
     Route: 065
  2. AMOXICILLIN+CLAVULANIC ACID [Interacting]
     Active Substance: AMOXICILLIN\CLAVULANIC ACID
     Indication: RESPIRATORY TRACT INFECTION
     Dosage: UNK
     Route: 048
  3. FUROSEMIDE. [Interacting]
     Active Substance: FUROSEMIDE
     Indication: CARDIAC FAILURE CONGESTIVE
     Dosage: UNK
     Route: 065
  4. WARFARIN [Interacting]
     Active Substance: WARFARIN
     Indication: CORONARY ARTERY DISEASE
     Dosage: UNK
     Route: 065

REACTIONS (10)
  - Prothrombin time prolonged [Unknown]
  - Product use in unapproved indication [Unknown]
  - Hypokalaemia [Unknown]
  - Hepatic enzyme increased [Unknown]
  - Hyponatraemia [Unknown]
  - Drug interaction [Unknown]
  - Respiratory tract infection [Unknown]
  - Hyperuricaemia [Unknown]
  - Cardiac failure congestive [Unknown]
  - International normalised ratio increased [Unknown]
